FAERS Safety Report 20843645 (Version 2)
Quarter: 2022Q2

REPORT INFORMATION
  Report Type: Spontaneous
  Country: US (occurrence: US)
  Receive Date: 20220518
  Receipt Date: 20220601
  Transmission Date: 20220721
  Serious: No
  Sender: FDA-Public Use
  Company Number: US-BAYER-2022A070340

PATIENT
  Age: 77 Year
  Sex: Female

DRUGS (2)
  1. MIRALAX [Suspect]
     Active Substance: POLYETHYLENE GLYCOL 3350
     Indication: Gastrointestinal disorder
     Dosage: UNK UNK, HS
     Route: 048
  2. PLANTAGO MAJOR LEAF [Concomitant]
     Active Substance: PLANTAGO MAJOR LEAF
     Dosage: UNK UNK, HS

REACTIONS (3)
  - Malaise [None]
  - Product physical consistency issue [None]
  - Product taste abnormal [None]
